FAERS Safety Report 7084095-5 (Version None)
Quarter: 2010Q4

REPORT INFORMATION
  Report Type: 
  Country: None (occurrence: None)
  Receive Date: 20101104
  Receipt Date: 20101103
  Transmission Date: 20110411
  Serious: Yes (Life-Threatening, Hospitalization)
  Sender: FDA-Public Use
  Company Number: ES-WYE-H18185410

PATIENT
  Sex: Female
  Weight: 85 kg

DRUGS (5)
  1. TEMSIROLIMUS [Suspect]
     Indication: GLIOBLASTOMA
     Dosage: 25MG ACTUAL DOSE GIVEN AT LAST ADMINISTRATION; 25MG CONCOMITANT THERAPY ONCE PER WEEK
     Route: 042
     Dates: start: 20100923, end: 20101007
  2. ESCITALOPRAM [Concomitant]
     Indication: DEPRESSION
     Route: 048
     Dates: start: 20101007
  3. LACOSAMIDE [Concomitant]
     Indication: CONVULSION
     Route: 048
     Dates: start: 20100925
  4. DEXAMETHASONE [Suspect]
     Indication: BRAIN OEDEMA
     Route: 048
     Dates: start: 20100930
  5. KEPPRA [Concomitant]
     Indication: CONVULSION
     Route: 048
     Dates: start: 20101009

REACTIONS (1)
  - HYPOKALAEMIA [None]
